FAERS Safety Report 9387434 (Version 1)
Quarter: 2013Q3

REPORT INFORMATION
  Report Type: Spontaneous
  Country: US (occurrence: None)
  Receive Date: 20130703
  Receipt Date: 20130703
  Transmission Date: 20140515
  Serious: Yes (Disabling)
  Sender: FDA-Public Use
  Company Number: None

PATIENT
  Age: 12 Year
  Sex: Female
  Weight: 61.24 kg

DRUGS (2)
  1. TOPIRAMATE [Suspect]
     Indication: HEADACHE
     Dosage: 25 MG 1/2 PILL 1X DAILY BY MOUTH
     Route: 048
     Dates: start: 20130620, end: 20130626
  2. CLARITIN [Concomitant]

REACTIONS (1)
  - Vision blurred [None]
